FAERS Safety Report 14848465 (Version 2)
Quarter: 2018Q2

REPORT INFORMATION
  Report Type: Spontaneous
  Country: AT (occurrence: AT)
  Receive Date: 20180504
  Receipt Date: 20180531
  Transmission Date: 20180711
  Serious: Yes (Death, Other)
  Sender: FDA-Public Use
  Company Number: AT-TEVA-2018-AT-889619

PATIENT
  Age: 45 Year
  Sex: Male

DRUGS (5)
  1. MYCOPHENOLATE MOFETIL. [Suspect]
     Active Substance: MYCOPHENOLATE MOFETIL
     Indication: RENAL TRANSPLANT
     Route: 065
  2. RITUXIMAB. [Suspect]
     Active Substance: RITUXIMAB
     Indication: POST TRANSPLANT LYMPHOPROLIFERATIVE DISORDER
     Route: 065
     Dates: start: 201004
  3. BENDAMUSTINE HYDROCHLORIDE. [Suspect]
     Active Substance: BENDAMUSTINE HYDROCHLORIDE
     Indication: POST TRANSPLANT LYMPHOPROLIFERATIVE DISORDER
     Route: 042
     Dates: start: 201104
  4. TACROLIMUS. [Suspect]
     Active Substance: TACROLIMUS
     Indication: RENAL TRANSPLANT
     Route: 065
  5. TACROLIMUS. [Suspect]
     Active Substance: TACROLIMUS
     Route: 065

REACTIONS (5)
  - Seminoma [Unknown]
  - Product use in unapproved indication [Unknown]
  - Progressive multifocal leukoencephalopathy [Fatal]
  - JC polyomavirus test positive [Fatal]
  - Post transplant lymphoproliferative disorder [Unknown]
